FAERS Safety Report 7902570-5 (Version None)
Quarter: 2011Q4

REPORT INFORMATION
  Report Type: 
  Country: None (occurrence: None)
  Receive Date: 20111108
  Receipt Date: 20111024
  Transmission Date: 20120403
  Serious: Yes (Hospitalization)
  Sender: FDA-Public Use
  Company Number: US-WATSON-2011-18575

PATIENT
  Age: 58 Year
  Sex: Male

DRUGS (6)
  1. SEVOFLURANE [Suspect]
     Indication: ANAESTHESIA
  2. VECURONIUM BROMIDE [Suspect]
     Indication: ANAESTHESIA
     Dosage: UNK
     Route: 065
  3. MIDAZOLAM HCL [Suspect]
     Indication: ANAESTHESIA
  4. FENTANYL-100 [Suspect]
     Indication: ANAESTHESIA
     Dosage: UNK
     Route: 065
  5. REMIFENTANIL [Suspect]
     Indication: ANAESTHESIA
  6. ISOFLURANE [Suspect]
     Indication: ANAESTHESIA

REACTIONS (3)
  - BRADYCARDIA [None]
  - ELECTROCARDIOGRAM ST SEGMENT ELEVATION [None]
  - HYPOTENSION [None]
